FAERS Safety Report 11412632 (Version 1)
Quarter: 2015Q3

REPORT INFORMATION
  Report Type: Spontaneous
  Country: US (occurrence: US)
  Receive Date: 20150821
  Receipt Date: 20150821
  Transmission Date: 20151125
  Serious: No
  Sender: FDA-Public Use
  Company Number: US-ELI_LILLY_AND_COMPANY-US201108004213

PATIENT
  Sex: Male

DRUGS (6)
  1. HUMULIN N [Suspect]
     Active Substance: INSULIN HUMAN
     Dosage: 5 U, OTHER
  2. HUMULIN N [Suspect]
     Active Substance: INSULIN HUMAN
     Dosage: 17 U, EACH MORNING
  3. HUMULIN N [Suspect]
     Active Substance: INSULIN HUMAN
     Indication: TYPE 1 DIABETES MELLITUS
     Dosage: 17 U, EACH MORNING
  4. HUMULIN N [Suspect]
     Active Substance: INSULIN HUMAN
     Dosage: 2 U, OTHER
  5. HUMULIN N [Suspect]
     Active Substance: INSULIN HUMAN
     Dosage: 5 U, OTHER
  6. HUMULIN N [Suspect]
     Active Substance: INSULIN HUMAN
     Dosage: 2 U, OTHER

REACTIONS (7)
  - Gait disturbance [Unknown]
  - Visual impairment [Unknown]
  - Diabetes mellitus inadequate control [Unknown]
  - Drug effect decreased [Unknown]
  - Thinking abnormal [Unknown]
  - Hyperglycaemia [Unknown]
  - Feeling abnormal [Unknown]

NARRATIVE: CASE EVENT DATE: 20110712
